FAERS Safety Report 7400277-4 (Version None)
Quarter: 2011Q2

REPORT INFORMATION
  Report Type: 
  Country: None (occurrence: None)
  Receive Date: 20110407
  Receipt Date: 20110404
  Transmission Date: 20111010
  Serious: Yes (Disabling, Other)
  Sender: FDA-Public Use
  Company Number: IE-ABBOTT-11P-229-0706219-00

PATIENT
  Sex: Male
  Weight: 60 kg

DRUGS (5)
  1. HUMIRA [Suspect]
  2. MESALAMINE [Concomitant]
     Indication: CROHN'S DISEASE
     Route: 048
     Dates: start: 20060712
  3. HUMIRA [Suspect]
     Indication: CROHN'S DISEASE
     Dates: start: 20090201, end: 20100301
  4. HUMIRA [Suspect]
  5. AZATHIOPRINE [Concomitant]
     Indication: CROHN'S DISEASE
     Route: 048
     Dates: start: 20060123

REACTIONS (10)
  - PARAESTHESIA [None]
  - HYPERREFLEXIA [None]
  - MULTIPLE SCLEROSIS [None]
  - EXTENSOR PLANTAR RESPONSE [None]
  - HYPOAESTHESIA [None]
  - GAIT DISTURBANCE [None]
  - HYPERTONIA [None]
  - MUSCULAR WEAKNESS [None]
  - DEMYELINATION [None]
  - SENSATION OF HEAVINESS [None]
